FAERS Safety Report 19947358 (Version 2)
Quarter: 2021Q4

REPORT INFORMATION
  Report Type: Spontaneous
  Country: US (occurrence: US)
  Receive Date: 20211013
  Receipt Date: 20211018
  Transmission Date: 20220303
  Serious: No
  Sender: FDA-Public Use
  Company Number: US-AIMMUNE THERAPEUTICS, INC.-2021AIMT00604

PATIENT

DRUGS (1)
  1. PALFORZIA [Suspect]
     Active Substance: PEANUT
     Indication: Food allergy
     Dosage: 3 MG, 1X/DAY
     Route: 048
     Dates: start: 20210915, end: 20211002

REACTIONS (8)
  - Diarrhoea [Unknown]
  - Flatulence [Not Recovered/Not Resolved]
  - Dyspepsia [Unknown]
  - Cough [Recovered/Resolved]
  - Throat irritation [Unknown]
  - Abdominal pain upper [Not Recovered/Not Resolved]
  - Nausea [Unknown]
  - Vomiting [Recovered/Resolved]

NARRATIVE: CASE EVENT DATE: 20210901
